FAERS Safety Report 11127970 (Version 1)
Quarter: 2015Q2

REPORT INFORMATION
  Report Type: Spontaneous
  Country: US (occurrence: US)
  Receive Date: 20150521
  Receipt Date: 20150521
  Transmission Date: 20150821
  Serious: No
  Sender: FDA-Public Use
  Company Number: US-LPDUSPRD-20150050

PATIENT
  Sex: Female

DRUGS (1)
  1. INJECTAFER [Suspect]
     Active Substance: FERRIC CARBOXYMALTOSE
     Dosage: 750 MG/250 ML NORMAL SALINE
     Route: 042
     Dates: start: 20150116

REACTIONS (3)
  - Headache [Unknown]
  - Rash generalised [Recovered/Resolved]
  - Nausea [Unknown]
